FAERS Safety Report 10339785 (Version 1)
Quarter: 2014Q3

REPORT INFORMATION
  Report Type: Spontaneous
  Country: US (occurrence: None)
  Receive Date: 20140723
  Receipt Date: 20140723
  Transmission Date: 20150326
  Serious: Yes (Life-Threatening)
  Sender: FDA-Public Use
  Company Number: None

PATIENT
  Age: 18 Year
  Sex: Male
  Weight: 63.5 kg

DRUGS (2)
  1. NASAL DECONGESTANT PE MAXIMUM STRENGTH [Suspect]
     Active Substance: PHENYLEPHRINE HYDROCHLORIDE
     Indication: SINUS HEADACHE
     Dates: start: 20140204, end: 20140206
  2. NASAL DECONGESTANT PE MAXIMUM STRENGTH [Suspect]
     Active Substance: PHENYLEPHRINE HYDROCHLORIDE
     Indication: DIZZINESS
     Dates: start: 20140204, end: 20140206

REACTIONS (2)
  - Agitation [None]
  - Suicidal ideation [None]

NARRATIVE: CASE EVENT DATE: 20140306
